FAERS Safety Report 15136472 (Version 1)
Quarter: 2018Q3

REPORT INFORMATION
  Report Type: Spontaneous
  Country: GB (occurrence: GB)
  Receive Date: 20180712
  Receipt Date: 20180712
  Transmission Date: 20181010
  Serious: Yes (Hospitalization)
  Sender: FDA-Public Use
  Company Number: GB-SA-2018SA176766

PATIENT
  Age: 92 Year
  Sex: Female

DRUGS (2)
  1. OXYGEN. [Concomitant]
     Active Substance: OXYGEN
     Dosage: UNK, UNK
     Route: 045
  2. ENOXAPARIN SODIUM. [Suspect]
     Active Substance: ENOXAPARIN SODIUM
     Indication: PULMONARY EMBOLISM
     Dosage: 100 MG, QD
     Route: 065
     Dates: start: 20170509, end: 20170510

REACTIONS (6)
  - Asthenia [Unknown]
  - Confusional state [Unknown]
  - Abdominal pain lower [Unknown]
  - Cold sweat [Unknown]
  - Syncope [Unknown]
  - Pallor [Unknown]

NARRATIVE: CASE EVENT DATE: 20170508
